FAERS Safety Report 8890286 (Version 1)
Quarter: 2012Q4

REPORT INFORMATION
  Report Type: 
  Country: CA (occurrence: CA)
  Receive Date: 20121106
  Receipt Date: 20121106
  Transmission Date: 20130627
  Serious: Yes (Death)
  Sender: FDA-Public Use
  Company Number: PHHO2005CA08193

PATIENT
  Sex: Female

DRUGS (5)
  1. SANDOSTATIN LAR (PATIENT BASIS) [Suspect]
     Indication: CARCINOID TUMOUR
     Dosage: 10 mg, QMO
     Dates: start: 20050204
  2. PLAQUENIL [Concomitant]
  3. PREVACID [Concomitant]
  4. TYLENOL [Concomitant]
  5. VITAMIN B12 [Concomitant]

REACTIONS (5)
  - Death [Fatal]
  - Injection site reaction [Unknown]
  - Hot flush [Unknown]
  - Abdominal distension [Unknown]
  - Dyspnoea [Unknown]
